FAERS Safety Report 25918193 (Version 1)
Quarter: 2025Q4

REPORT INFORMATION
  Report Type: Spontaneous
  Country: US (occurrence: US)
  Receive Date: 20251014
  Receipt Date: 20251014
  Transmission Date: 20260118
  Serious: No
  Sender: ORPHALAN
  Company Number: US-ORPHALAN-US-ORP-25-00063

PATIENT

DRUGS (1)
  1. CUVRIOR [Suspect]
     Active Substance: TRIENTINE TETRAHYDROCHLORIDE
     Indication: Hepato-lenticular degeneration
     Dosage: 150 MILLIGRAM, BID, DISCARD UNUSED HALF TABLETS
     Route: 048
     Dates: start: 20240517

REACTIONS (3)
  - Product use issue [Unknown]
  - Product distribution issue [Unknown]
  - Off label use [Unknown]
